FAERS Safety Report 16552032 (Version 4)
Quarter: 2020Q1

REPORT INFORMATION
  Report Type: Report from Study
  Country: US (occurrence: US)
  Receive Date: 20190710
  Receipt Date: 20200324
  Transmission Date: 20200409
  Serious: Yes (Other)
  Sender: FDA-Public Use
  Company Number: US-ASTELLAS-2019US026951

PATIENT
  Age: 63 Year
  Sex: Male

DRUGS (2)
  1. ASP2215 [Suspect]
     Active Substance: GILTERITINIB
     Indication: LEUKAEMIA
     Route: 048
     Dates: start: 20190531
  2. ASP2215 [Suspect]
     Active Substance: GILTERITINIB
     Route: 048
     Dates: start: 20190603

REACTIONS (9)
  - Cardiac disorder [Unknown]
  - Chapped lips [Unknown]
  - Renal disorder [Unknown]
  - Joint injury [Unknown]
  - Skin atrophy [Unknown]
  - Product use in unapproved indication [Unknown]
  - Liver disorder [Unknown]
  - Rash [Recovering/Resolving]
  - Pruritus [Unknown]

NARRATIVE: CASE EVENT DATE: 20190531
